FAERS Safety Report 22141668 (Version 2)
Quarter: 2023Q4

REPORT INFORMATION
  Report Type: Spontaneous
  Country: US (occurrence: US)
  Receive Date: 20230327
  Receipt Date: 20231002
  Transmission Date: 20240110
  Serious: No
  Sender: FDA-Public Use
  Company Number: US-PFIZER INC-PV202300054983

PATIENT
  Age: 28 Year
  Sex: Female

DRUGS (1)
  1. XELJANZ XR [Suspect]
     Active Substance: TOFACITINIB CITRATE
     Dosage: UNK
     Dates: start: 20210625

REACTIONS (5)
  - Condition aggravated [Unknown]
  - Sensitivity to weather change [Unknown]
  - Photosensitivity reaction [Unknown]
  - Sunburn [Unknown]
  - Illness [Unknown]
